FAERS Safety Report 6997202-7 (Version None)
Quarter: 2010Q3

REPORT INFORMATION
  Report Type: 
  Country: None (occurrence: None)
  Receive Date: 20100918
  Receipt Date: 20090922
  Transmission Date: 20110219
  Serious: No
  Sender: FDA-Public Use
  Company Number: US-WYE-H11169309

PATIENT
  Sex: Female
  Weight: 90.35 kg

DRUGS (3)
  1. PRISTIQ [Suspect]
     Indication: DEPRESSION
     Route: 048
     Dates: start: 20090915, end: 20090921
  2. SYNTHROID [Concomitant]
  3. LABETALOL HCL [Concomitant]

REACTIONS (3)
  - CHEST DISCOMFORT [None]
  - FEAR [None]
  - PALPITATIONS [None]
